FAERS Safety Report 8908309 (Version 1)
Quarter: 2012Q4

REPORT INFORMATION
  Report Type: 
  Country: US (occurrence: US)
  Receive Date: 20121113
  Receipt Date: 20121113
  Transmission Date: 20130627
  Serious: No
  Sender: FDA-Public Use
  Company Number: US-AMGEN-USASP2012040933

PATIENT
  Sex: Male

DRUGS (3)
  1. ARANESP [Suspect]
     Indication: ANAEMIA
     Dosage: 200 mug, one time dose
     Dates: start: 20120606, end: 20120606
  2. ARANESP [Suspect]
     Dosage: 200 mug, one time dose
     Dates: start: 20120630, end: 20120630
  3. EPOGEN [Suspect]
     Indication: ANAEMIA

REACTIONS (4)
  - Haemoglobin decreased [Unknown]
  - Somnolence [Unknown]
  - Dyspnoea [Unknown]
  - Drug ineffective [Unknown]
